FAERS Safety Report 9028499 (Version 1)
Quarter: 2013Q1

REPORT INFORMATION
  Report Type: Spontaneous
  Country: FR (occurrence: FR)
  Receive Date: 20130124
  Receipt Date: 20130124
  Transmission Date: 20140127
  Serious: Yes (Hospitalization)
  Sender: FDA-Public Use
  Company Number: FR-UCBSA-076319

PATIENT
  Age: 59 Year
  Sex: Male
  Weight: 87 kg

DRUGS (7)
  1. KEPPRA [Suspect]
     Dosage: 1000 MG
     Dates: start: 20101115
  2. BEVACIZUMAB [Suspect]
     Indication: GLIOBLASTOMA
     Dosage: SOLUTION,PLACEBO
     Route: 042
     Dates: start: 20110104, end: 20110225
  3. TEMOZOLOMIDE [Suspect]
     Indication: GLIOBLASTOMA
     Route: 048
     Dates: start: 20110104, end: 20110214
  4. EUPANTOL [Concomitant]
     Dosage: 20 MG
     Dates: start: 201011, end: 20110214
  5. DOMPERIDONE/OMEPRAZOLE [Concomitant]
  6. DOMPERIDONE/OMEPRAZOLE [Concomitant]
  7. NEDRA [Concomitant]

REACTIONS (1)
  - Diabetes insipidus [Recovered/Resolved]
